FAERS Safety Report 9321575 (Version 1)
Quarter: 2013Q2

REPORT INFORMATION
  Report Type: Spontaneous
  Country: CA (occurrence: CA)
  Receive Date: 20130531
  Receipt Date: 20130531
  Transmission Date: 20140414
  Serious: Yes (Other)
  Sender: FDA-Public Use
  Company Number: CA-TEVA-409122USA

PATIENT
  Age: 52 Year
  Sex: Female
  Weight: 82 kg

DRUGS (1)
  1. CARBOPLATIN [Suspect]
     Dosage: 30 MILLIGRAM DAILY;
     Route: 042

REACTIONS (5)
  - Chest discomfort [Recovered/Resolved]
  - Dyspnoea [Recovered/Resolved]
  - Flushing [Recovered/Resolved]
  - Vulvovaginal discomfort [Recovered/Resolved]
  - Vulvovaginal pain [Recovered/Resolved]
